FAERS Safety Report 6718618-X (Version None)
Quarter: 2010Q2

REPORT INFORMATION
  Report Type: 
  Country: None (occurrence: None)
  Receive Date: 20100505
  Receipt Date: 20100428
  Transmission Date: 20101027
  Serious: Yes (Death)
  Sender: FDA-Public Use
  Company Number: 2010AL002523

PATIENT
  Age: 71 Year
  Sex: Male

DRUGS (5)
  1. CITALOPRAM HYDROBROMIDE [Suspect]
     Indication: DEPRESSION
     Dosage: 10 MG/ML;UNKNOWN;IV
     Route: 042
     Dates: start: 20100324, end: 20100409
  2. CYCLIZINE [Concomitant]
  3. ONDANSETRON [Concomitant]
  4. LITHIUM CARBONATE [Concomitant]
  5. TPN [Concomitant]

REACTIONS (2)
  - NAUSEA [None]
  - PNEUMONIA [None]
